FAERS Safety Report 19272999 (Version 4)
Quarter: 2022Q2

REPORT INFORMATION
  Report Type: Report from Study
  Country: US (occurrence: US)
  Receive Date: 20210519
  Receipt Date: 20220426
  Transmission Date: 20220721
  Serious: Yes (Hospitalization, Other)
  Sender: FDA-Public Use
  Company Number: US-BIOGEN-2021BI01011801

PATIENT
  Age: 76 Year
  Sex: Female

DRUGS (1)
  1. TYSABRI [Suspect]
     Active Substance: NATALIZUMAB
     Indication: Multiple sclerosis
     Route: 065
     Dates: start: 20071024, end: 20210128

REACTIONS (6)
  - Staphylococcal infection [Not Recovered/Not Resolved]
  - Fall [Recovered/Resolved]
  - Hand fracture [Unknown]
  - Pain [Unknown]
  - Upper limb fracture [Unknown]
  - Muscle fatigue [Unknown]

NARRATIVE: CASE EVENT DATE: 20210101
